FAERS Safety Report 15417782 (Version 1)
Quarter: 2018Q3

REPORT INFORMATION
  Report Type: Spontaneous
  Country: US (occurrence: US)
  Receive Date: 20180924
  Receipt Date: 20180924
  Transmission Date: 20181010
  Serious: Yes (Hospitalization)
  Sender: FDA-Public Use
  Company Number: US-DSJP-DSU-2017-138500

PATIENT

DRUGS (1)
  1. BENICAR HCT [Suspect]
     Active Substance: HYDROCHLOROTHIAZIDE\OLMESARTAN MEDOXOMIL
     Indication: BLOOD PRESSURE MANAGEMENT
     Dosage: 40/12.5 MG, UNK
     Dates: start: 20121117, end: 20170711

REACTIONS (3)
  - Diverticulitis [Unknown]
  - Haemorrhoids [Unknown]
  - Sprue-like enteropathy [Recovering/Resolving]

NARRATIVE: CASE EVENT DATE: 20130928
